FAERS Safety Report 12732390 (Version 1)
Quarter: 2016Q3

REPORT INFORMATION
  Report Type: Spontaneous
  Country: US (occurrence: US)
  Receive Date: 20160909
  Receipt Date: 20160909
  Transmission Date: 20161109
  Serious: Yes (Hospitalization)
  Sender: FDA-Public Use
  Company Number: None

PATIENT
  Age: 56 Year
  Sex: Male
  Weight: 83.46 kg

DRUGS (26)
  1. COLCHICINE. [Concomitant]
     Active Substance: COLCHICINE
  2. OMEPRAZOLE. [Concomitant]
     Active Substance: OMEPRAZOLE
  3. SODIUM POLYSTYRENE SULFONATE. [Concomitant]
     Active Substance: SODIUM POLYSTYRENE SULFONATE
  4. CINACALCET [Concomitant]
     Active Substance: CINACALCET
  5. MECLIZINE [Concomitant]
     Active Substance: MECLIZINE HYDROCHLORIDE
  6. OXYCODONE [Concomitant]
     Active Substance: OXYCODONE
  7. LANATHANUM [Concomitant]
  8. ROPINIROLE. [Concomitant]
     Active Substance: ROPINIROLE
  9. WARFARIN [Concomitant]
     Active Substance: WARFARIN
  10. NAFCILLIN [Concomitant]
     Active Substance: NAFCILLIN\NAFCILLIN SODIUM
  11. ZEPATIER [Suspect]
     Active Substance: ELBASVIR\GRAZOPREVIR
     Indication: HEPATITIS C
     Dosage: 50MG/100MG QD ORAL
     Route: 048
     Dates: start: 20160414, end: 20160707
  12. TORADOL [Concomitant]
     Active Substance: KETOROLAC TROMETHAMINE
  13. DILAUDID [Concomitant]
     Active Substance: HYDROMORPHONE HYDROCHLORIDE
  14. ALLOPURINOL. [Concomitant]
     Active Substance: ALLOPURINOL
  15. FERROUS SULFATE. [Concomitant]
     Active Substance: FERROUS SULFATE
  16. MORPHINE [Concomitant]
     Active Substance: MORPHINE
  17. ATORVASTATIN [Concomitant]
     Active Substance: ATORVASTATIN
  18. VITAMIN B COMPLEX [Concomitant]
     Active Substance: CYANOCOBALAMIN\DEXPANTHENOL\NIACINAMIDE\PYRIDOXINE HYDROCHLORIDE\RIBOFLAVIN 5^-PHOSPHATE SODIUM\THIAMINE HYDROCHLORIDE\VITAMIN B COMPLEX
  19. DARBEPOETIN ALFA [Concomitant]
     Active Substance: DARBEPOETIN ALFA
  20. CEFAZOLIN [Concomitant]
     Active Substance: CEFAZOLIN
  21. VITAMIN C [Concomitant]
     Active Substance: ASCORBIC ACID
  22. DOCUSATE SODIUM. [Concomitant]
     Active Substance: DOCUSATE SODIUM
  23. NORTRIPTYLINE [Concomitant]
     Active Substance: NORTRIPTYLINE
  24. VANCOMYCIN [Concomitant]
     Active Substance: VANCOMYCIN
  25. SILDENAFIL. [Concomitant]
     Active Substance: SILDENAFIL
  26. PREDNISONE. [Concomitant]
     Active Substance: PREDNISONE

REACTIONS (4)
  - Septic arthritis staphylococcal [None]
  - Arthralgia [None]
  - Staphylococcal infection [None]
  - Staphylococcal bacteraemia [None]

NARRATIVE: CASE EVENT DATE: 20160429
